FAERS Safety Report 16863747 (Version 5)
Quarter: 2019Q4

REPORT INFORMATION
  Report Type: Report from Study
  Country: GB (occurrence: GB)
  Receive Date: 20190927
  Receipt Date: 20191127
  Transmission Date: 20200122
  Serious: Yes (Death, Life-Threatening, Hospitalization, Other)
  Sender: FDA-Public Use
  Company Number: GB-AVEXISPRA-CTR-AVXS12019-0014

PATIENT
  Age: 5 Month
  Sex: Male
  Weight: 6.1 kg

DRUGS (3)
  1. PREDNISOLONE. [Concomitant]
     Active Substance: PREDNISOLONE
     Indication: PROPHYLAXIS
     Dosage: 5.8 ML, QD
     Route: 048
     Dates: start: 20181203
  2. AVXS-101 [Suspect]
     Active Substance: ONASEMNOGENE ABEPARVOVEC
     Indication: SPINAL MUSCULAR ATROPHY
     Dosage: 33 ML, SINGLE
     Route: 042
     Dates: start: 20181204, end: 20181204
  3. HYDROCORTISONE. [Concomitant]
     Active Substance: HYDROCORTISONE
     Indication: TRANSAMINASES INCREASED
     Dosage: 6 MG, QD
     Route: 042
     Dates: start: 20181231

REACTIONS (10)
  - Hypoxic-ischaemic encephalopathy [Fatal]
  - Respiratory distress [Fatal]
  - Thrombocytopenia [Recovered/Resolved]
  - Respiratory distress [Recovered/Resolved]
  - Aspartate aminotransferase increased [Not Recovered/Not Resolved]
  - Alanine aminotransferase increased [Recovered/Resolved]
  - Coagulation test abnormal [Not Recovered/Not Resolved]
  - Gamma-glutamyltransferase increased [Not Recovered/Not Resolved]
  - Bronchiolitis [Recovered/Resolved]
  - Hypernatraemia [Not Recovered/Not Resolved]

NARRATIVE: CASE EVENT DATE: 20181216
